FAERS Safety Report 19188155 (Version 1)
Quarter: 2021Q2

REPORT INFORMATION
  Report Type: Spontaneous
  Country: US (occurrence: US)
  Receive Date: 20210428
  Receipt Date: 20210428
  Transmission Date: 20210717
  Serious: Yes (Hospitalization, Other)
  Sender: FDA-Public Use
  Company Number: US-HIKMA PHARMACEUTICALS USA INC.-US-H14001-21-02010

PATIENT
  Sex: Female

DRUGS (4)
  1. XOSPATA [Suspect]
     Active Substance: GILTERITINIB
     Route: 048
     Dates: start: 20190115
  2. XOSPATA [Suspect]
     Active Substance: GILTERITINIB
     Route: 048
  3. METHADONE [Suspect]
     Active Substance: METHADONE HYDROCHLORIDE
     Indication: PRODUCT USED FOR UNKNOWN INDICATION
     Dosage: UNKNOWN
     Route: 065
  4. XOSPATA [Suspect]
     Active Substance: GILTERITINIB
     Indication: ACUTE MYELOID LEUKAEMIA
     Route: 048
     Dates: end: 20181231

REACTIONS (7)
  - Acute myeloid leukaemia [Unknown]
  - Blood thyroid stimulating hormone increased [Recovering/Resolving]
  - Drug interaction [Unknown]
  - Diarrhoea [Unknown]
  - Malaise [Unknown]
  - Sleep apnoea syndrome [Unknown]
  - Intestinal obstruction [Unknown]
